FAERS Safety Report 8073907-4 (Version None)
Quarter: 2011Q4

REPORT INFORMATION
  Report Type: 
  Country: None (occurrence: None)
  Receive Date: 20111221
  Receipt Date: 20101028
  Transmission Date: 20120403
  Serious: Yes (Other)
  Sender: FDA-Public Use
  Company Number: PHHY2010US24076

PATIENT
  Age: 44 Year
  Sex: Female

DRUGS (2)
  1. CYCLOSPORINE [Concomitant]
  2. EXJADE [Suspect]
     Indication: IRON OVERLOAD
     Dosage: 1000 MG, QD, ORAL, 500 MG,  QD, ORAL
     Route: 048
     Dates: start: 20100421

REACTIONS (3)
  - LIVER FUNCTION TEST ABNORMAL [None]
  - DIARRHOEA [None]
  - SERUM FERRITIN INCREASED [None]
